FAERS Safety Report 20510806 (Version 1)
Quarter: 2022Q1

REPORT INFORMATION
  Report Type: Spontaneous
  Country: GB (occurrence: GB)
  Receive Date: 20220224
  Receipt Date: 20220224
  Transmission Date: 20220423
  Serious: Yes (Other)
  Sender: FDA-Public Use
  Company Number: GB-MHRA-MED-202202081542028430-HCRQN

PATIENT
  Age: 21 Year
  Sex: Female

DRUGS (2)
  1. MIRTAZAPINE [Suspect]
     Active Substance: MIRTAZAPINE
     Indication: Depression
     Dosage: 15 MILLIGRAM
     Route: 065
     Dates: start: 20220202, end: 20220205
  2. CITALOPRAM [Concomitant]
     Active Substance: CITALOPRAM HYDROBROMIDE
     Indication: Product used for unknown indication
     Dosage: UNK
     Route: 065
     Dates: start: 20211222, end: 20220128

REACTIONS (5)
  - Somnolence [Recovering/Resolving]
  - Depression suicidal [Recovering/Resolving]
  - Bradyphrenia [Recovering/Resolving]
  - Affect lability [Recovering/Resolving]
  - Feeling abnormal [Unknown]
